FAERS Safety Report 9729421 (Version 2)
Quarter: 2015Q3

REPORT INFORMATION
  Report Type: Spontaneous
  Country: US (occurrence: US)
  Receive Date: 20131204
  Receipt Date: 20150804
  Transmission Date: 20151125
  Serious: No
  Sender: FDA-Public Use
  Company Number: US-GILEAD-2009-0021253

PATIENT
  Age: 60 Year
  Sex: Female
  Weight: 72.57 kg

DRUGS (12)
  1. CLIMARA [Concomitant]
     Active Substance: ESTRADIOL
  2. WARFARIN [Concomitant]
     Active Substance: WARFARIN
  3. DIGOXIN. [Concomitant]
     Active Substance: DIGOXIN
  4. FLONASE [Concomitant]
     Active Substance: FLUTICASONE PROPIONATE
  5. SPIRINOLACTONE [Concomitant]
  6. GABAPENTIN. [Concomitant]
     Active Substance: GABAPENTIN
  7. PERCOCET [Concomitant]
     Active Substance: ACETAMINOPHEN\OXYCODONE HYDROCHLORIDE
  8. LETAIRIS [Suspect]
     Active Substance: AMBRISENTAN
     Indication: PULMONARY ARTERIAL HYPERTENSION
     Route: 048
     Dates: start: 20090206
  9. VITAMIN D [Concomitant]
     Active Substance: CHOLECALCIFEROL
  10. LASIX [Concomitant]
     Active Substance: FUROSEMIDE
  11. MORPHINE [Concomitant]
     Active Substance: MORPHINE
  12. REVATIO [Concomitant]
     Active Substance: SILDENAFIL CITRATE

REACTIONS (1)
  - Anaemia [Unknown]
